FAERS Safety Report 11765825 (Version 7)
Quarter: 2016Q1

REPORT INFORMATION
  Report Type: Report from Study
  Country: CO (occurrence: CO)
  Receive Date: 20151121
  Receipt Date: 20160310
  Transmission Date: 20160525
  Serious: Yes (Disabling, Other)
  Sender: FDA-Public Use
  Company Number: PHHY2015CO152114

PATIENT
  Age: 62 Year
  Sex: Male
  Weight: 54 kg

DRUGS (5)
  1. VOTRIENT [Suspect]
     Active Substance: PAZOPANIB HYDROCHLORIDE
     Indication: RENAL CANCER METASTATIC
     Dosage: 01 DF, BID
     Route: 048
     Dates: start: 20151110
  2. EFFEXOR [Concomitant]
     Active Substance: VENLAFAXINE HYDROCHLORIDE
     Indication: PRODUCT USED FOR UNKNOWN INDICATION
     Dosage: 150 MG, UNK
     Route: 065
  3. HYDROCODONE BITARTRATE AND ACETAMINOPHEN [Concomitant]
     Active Substance: ACETAMINOPHEN\HYDROCODONE BITARTRATE
     Indication: PRODUCT USED FOR UNKNOWN INDICATION
     Route: 065
  4. PAZOPANIB [Concomitant]
     Active Substance: PAZOPANIB
     Indication: RENAL CANCER
     Dosage: 400 MG, UNK
     Route: 065
  5. LYRICA [Concomitant]
     Active Substance: PREGABALIN
     Indication: SPINAL PAIN
     Dosage: 75 MG, UNK
     Route: 065

REACTIONS (12)
  - Depression [Unknown]
  - Post laminectomy syndrome [Unknown]
  - Fatigue [Unknown]
  - Abasia [Unknown]
  - Fibrosis [Unknown]
  - Amnesia [Unknown]
  - Pain [Unknown]
  - Anxiety [Unknown]
  - Dyspnoea [Unknown]
  - Pruritus generalised [Unknown]
  - Metastases to bone [Unknown]
  - Malaise [Unknown]

NARRATIVE: CASE EVENT DATE: 20151114
